FAERS Safety Report 20554493 (Version 1)
Quarter: 2022Q1

REPORT INFORMATION
  Report Type: Spontaneous
  Country: IT (occurrence: IT)
  Receive Date: 20220304
  Receipt Date: 20220304
  Transmission Date: 20220424
  Serious: Yes (Death, Hospitalization, Other)
  Sender: FDA-Public Use
  Company Number: IT-EMA-DD-20220215-bhardwaj_r-144714

PATIENT
  Age: 77 Year
  Sex: Female
  Weight: 50 kg

DRUGS (44)
  1. POSACONAZOLE [Suspect]
     Active Substance: POSACONAZOLE
     Indication: Prophylaxis
     Dosage: 300 MILLIGRAM DAILY; (100 MG,3 IN 1 D)
     Route: 048
     Dates: start: 20210922, end: 20211114
  2. ACETAMINOPHEN [Suspect]
     Active Substance: ACETAMINOPHEN
     Indication: Haemorrhoids
     Dosage: 500 MILLIGRAM DAILY; (500 MG,1 IN 1 )
     Route: 048
     Dates: start: 20211020, end: 20211020
  3. ACETAMINOPHEN [Suspect]
     Active Substance: ACETAMINOPHEN
     Indication: Contusion
     Dosage: UNK
     Route: 048
     Dates: start: 20211115, end: 20211115
  4. ACETAMINOPHEN [Suspect]
     Active Substance: ACETAMINOPHEN
     Dosage: 1 GM,1 IN 1 AS REQUIRED
     Route: 048
     Dates: start: 20211021, end: 20211114
  5. ACETAMINOPHEN [Suspect]
     Active Substance: ACETAMINOPHEN
     Dosage: 1 GRAM DAILY; (1 GM,1 IN 1)
     Route: 042
     Dates: start: 20211025, end: 20211025
  6. LEVOFLOXACIN [Suspect]
     Active Substance: LEVOFLOXACIN
     Dosage: 500 MILLIGRAM DAILY;
     Route: 048
     Dates: end: 20211114
  7. SIMVASTATIN [Suspect]
     Active Substance: SIMVASTATIN
     Indication: Dyslipidaemia
     Dosage: 20 MILLIGRAM DAILY; (20 MILLIGRAM, 1 IN 1D)
     Route: 048
     Dates: start: 20150101, end: 20211116
  8. IMETELSTAT [Suspect]
     Active Substance: IMETELSTAT
     Route: 065
  9. SODIUM [Concomitant]
     Active Substance: SODIUM
     Indication: Hyponatraemia
     Dosage: 0.9 %, 1 IN 1 AS REQUIRED
     Route: 042
     Dates: start: 20211018, end: 20211019
  10. MODURETIC 5-50 [Concomitant]
     Active Substance: AMILORIDE HYDROCHLORIDE\HYDROCHLOROTHIAZIDE
     Indication: Hypertension
     Dosage: 5+50 MG (5 MG,1 IN 1 D), UNIT DOSE : 1 DOSAGE FORMS
     Route: 048
     Dates: start: 20150101
  11. MODURETIC 5-50 [Concomitant]
     Active Substance: AMILORIDE HYDROCHLORIDE\HYDROCHLOROTHIAZIDE
     Dosage: 1 UNK, QD (5+50 MG (5 MG,1 IN 1 D)
     Route: 048
     Dates: start: 20150101
  12. PIPERACILLIN SODIUM\TAZOBACTAM SODIUM [Concomitant]
     Active Substance: PIPERACILLIN SODIUM\TAZOBACTAM SODIUM
     Indication: Product used for unknown indication
     Dosage: 4 G/0.5G, ONCE/SINGLE
     Route: 042
     Dates: start: 20211120, end: 20211120
  13. PIPERACILLIN SODIUM\TAZOBACTAM SODIUM [Concomitant]
     Active Substance: PIPERACILLIN SODIUM\TAZOBACTAM SODIUM
     Dosage: 4 G/0.5G, TID
     Route: 042
     Dates: start: 20011117, end: 20211119
  14. OMEPRAZOLE [Concomitant]
     Active Substance: OMEPRAZOLE
     Indication: Prophylaxis
     Dosage: 20 GRAM DAILY; 20 GRAM, 1 IN 1 D
     Route: 048
     Dates: start: 20190101
  15. TRAMADOL [Concomitant]
     Active Substance: TRAMADOL
     Indication: Haemorrhoids
     Dosage: 100 MILLIGRAM DAILY; (100 MG,1 IN 1)
     Route: 042
     Dates: start: 20211026, end: 20211026
  16. PROCTOLYN [Concomitant]
     Indication: Haemorrhoids
     Dosage: 3 UNK, QD (0.1+10 MG (3 IN 1 D)
     Route: 061
     Dates: start: 20211021, end: 20211028
  17. PROCTOLYN [Concomitant]
     Dosage: 0.1+10 MG (3 IN 1 D)
     Route: 061
     Dates: start: 20211021, end: 20211028
  18. ACYCLOVIR [Concomitant]
     Active Substance: ACYCLOVIR
     Indication: Prophylaxis
     Dosage: 800 MILLIGRAM DAILY; 800 MG,1 IN 1 D
     Route: 048
     Dates: start: 20190101, end: 20211114
  19. POTASSIUM CHLORIDE [Concomitant]
     Active Substance: POTASSIUM CHLORIDE
     Indication: Product used for unknown indication
     Dosage: 20 MILLIEQUIVALENTS DAILY;
     Route: 042
     Dates: start: 20211118, end: 20211119
  20. VALDERMA [Concomitant]
     Indication: Haemorrhoids
     Dosage: UNK
     Route: 048
     Dates: start: 20211029
  21. LASSAR PASTA [Concomitant]
     Indication: Haemorrhoids
     Dosage: UNK, MERCK
     Route: 061
     Dates: start: 20211029
  22. PURSENNID [Concomitant]
     Indication: Product used for unknown indication
     Dosage: 2 DOSAGE FORM, ONCE/SINGLE, [SENNA ALEXANDRINA LEAF]
     Route: 048
     Dates: start: 20211119, end: 20211119
  23. PURSENNID [Concomitant]
     Indication: Constipation
     Dosage: 2 TABLETS, ONCE, 2 DF
     Route: 048
     Dates: start: 20211119, end: 20211119
  24. MESALAMINE [Concomitant]
     Active Substance: MESALAMINE
     Indication: Haemorrhoids
     Dosage: 1 DOSAGE FORM
     Route: 054
     Dates: start: 20211029
  25. HUMAN RED BLOOD CELL [Concomitant]
     Active Substance: HUMAN RED BLOOD CELL
     Indication: Anaemia
     Route: 042
     Dates: start: 20211025, end: 20211025
  26. HUMAN RED BLOOD CELL [Concomitant]
     Active Substance: HUMAN RED BLOOD CELL
     Route: 042
     Dates: start: 20211010, end: 20211010
  27. HUMAN RED BLOOD CELL [Concomitant]
     Active Substance: HUMAN RED BLOOD CELL
     Route: 042
     Dates: start: 20211020, end: 20211020
  28. SODIUM CHLORIDE [Concomitant]
     Active Substance: SODIUM CHLORIDE
     Indication: Hyponatraemia
     Route: 042
     Dates: start: 20211116, end: 20211119
  29. SODIUM CHLORIDE [Concomitant]
     Active Substance: SODIUM CHLORIDE
     Dosage: 2340 MILLIGRAM DAILY; 2340 MILLIGRAM, 1 IN 1
     Route: 042
     Dates: start: 20211026, end: 20211026
  30. SODIUM CHLORIDE [Concomitant]
     Active Substance: SODIUM CHLORIDE
     Dosage: 2340 MG, 1 IN 1
     Route: 042
     Dates: start: 20211021, end: 20211021
  31. PLATELETS [Concomitant]
     Active Substance: HUMAN PLATELET, ALLOGENIC
     Indication: Thrombocytopenia
     Route: 042
     Dates: start: 20211108, end: 20211108
  32. PLATELETS [Concomitant]
     Active Substance: HUMAN PLATELET, ALLOGENIC
     Route: 042
     Dates: start: 20211102, end: 20211102
  33. PLATELETS [Concomitant]
     Active Substance: HUMAN PLATELET, ALLOGENIC
     Route: 042
     Dates: start: 20211019, end: 20211019
  34. POLYETHYLENE GLYCOL 3350\POTASSIUM CHLORIDE\SODIUM BICARBONATE\SODIUM [Concomitant]
     Active Substance: POLYETHYLENE GLYCOL 3350\POTASSIUM CHLORIDE\SODIUM BICARBONATE\SODIUM CHLORIDE
  35. SODIUM CHLORIDE [Concomitant]
     Active Substance: SODIUM CHLORIDE
     Dosage: 2340 MILLIGRAM, 1 IN 1
     Route: 042
     Dates: start: 20211022, end: 20211022
  36. SODIUM CHLORIDE [Concomitant]
     Active Substance: SODIUM CHLORIDE
     Dosage: 2340 MILLIGRAM, 1 IN 1
     Route: 042
     Dates: start: 20211025, end: 20211025
  37. SODIUM CHLORIDE [Concomitant]
     Active Substance: SODIUM CHLORIDE
     Dosage: 60 MILLIEQUIVALENTS DAILY;
  38. SODIUM CHLORIDE [Concomitant]
     Active Substance: SODIUM CHLORIDE
     Route: 042
     Dates: start: 20211112, end: 20211112
  39. MEROPENEM [Concomitant]
     Active Substance: MEROPENEM
     Indication: Pneumonia
     Dosage: 1000 MG, 3 IN 1 D,. UNIT DOSE: 3000 MG
     Route: 042
     Dates: start: 20210916, end: 20210921
  40. OXYGEN [Concomitant]
     Active Substance: OXYGEN
     Dosage: 1 TO 2 LITRES PER MINUTE AS NEEDED
     Dates: start: 20211117, end: 20211117
  41. OXYGEN [Concomitant]
     Active Substance: OXYGEN
     Dosage: 4 LITRES PER MINUTE AS NEEDED
     Dates: start: 20211120
  42. OXYGEN [Concomitant]
     Active Substance: OXYGEN
     Dosage: 3 LITRES PER MINUTE AS NEEDED
     Dates: start: 20211118, end: 20211119
  43. SARS-COV-2 VACCINE [Concomitant]
     Indication: COVID-19 immunisation
     Route: 030
     Dates: start: 20210314, end: 20210314
  44. HYDROXYUREA [Concomitant]
     Active Substance: HYDROXYUREA
     Indication: Acute myeloid leukaemia
     Dosage: 1000 MG, 500 MG, 2 IN 1 D
     Route: 048
     Dates: start: 20210906, end: 20211017

REACTIONS (21)
  - Blood bilirubin increased [Fatal]
  - Asthenia [Fatal]
  - Pneumonia [Fatal]
  - Thrombocytopenia [Fatal]
  - Hyponatraemia [Fatal]
  - Acute myeloid leukaemia [Fatal]
  - Anaemia [Fatal]
  - Nausea [Fatal]
  - Blood alkaline phosphatase increased [Fatal]
  - Drug-induced liver injury [Fatal]
  - Infection [Fatal]
  - Blood lactate dehydrogenase increased [Fatal]
  - Renal disorder [Fatal]
  - Diarrhoea [Fatal]
  - Constipation [Fatal]
  - Tachycardia [Fatal]
  - Hypokalaemia [Fatal]
  - Neutropenia [Fatal]
  - Vomiting [Fatal]
  - Aspartate aminotransferase increased [Fatal]
  - Pain [Fatal]

NARRATIVE: CASE EVENT DATE: 20210811
